FAERS Safety Report 6510351-2 (Version None)
Quarter: 2009Q4

REPORT INFORMATION
  Report Type: 
  Country: None (occurrence: None)
  Receive Date: 20091222
  Receipt Date: 20091021
  Transmission Date: 20100525
  Serious: No
  Sender: FDA-Public Use
  Company Number: US-ASTRAZENECA-2009SE16817

PATIENT
  Age: 55 Year
  Sex: Male

DRUGS (1)
  1. CRESTOR [Suspect]
     Indication: BLOOD CHOLESTEROL
     Route: 048
     Dates: start: 20060101, end: 20080101

REACTIONS (3)
  - CHEST PAIN [None]
  - HEART RATE INCREASED [None]
  - MYALGIA [None]
